FAERS Safety Report 4374152-6 (Version None)
Quarter: 2004Q2

REPORT INFORMATION
  Report Type: 
  Country: None (occurrence: None)
  Receive Date: 20040607
  Receipt Date: 20040601
  Transmission Date: 20050107
  Serious: Yes (Hospitalization, Disabling)
  Sender: FDA-Public Use
  Company Number: US-MERCK-0406USA00174

PATIENT
  Age: 74 Year
  Sex: Male

DRUGS (3)
  1. ACCUPRIL [Concomitant]
     Route: 065
  2. ZOCOR [Suspect]
     Indication: BLOOD CHOLESTEROL INCREASED
     Route: 048
     Dates: start: 20001201, end: 20010101
  3. ZOCOR [Suspect]
     Route: 048
     Dates: start: 20010101

REACTIONS (2)
  - CEREBROVASCULAR ACCIDENT [None]
  - HEPATIC ENZYME INCREASED [None]
